FAERS Safety Report 22324889 (Version 3)
Quarter: 2023Q4

REPORT INFORMATION
  Report Type: Spontaneous
  Country: US (occurrence: US)
  Receive Date: 20230516
  Receipt Date: 20231115
  Transmission Date: 20240110
  Serious: No
  Sender: FDA-Public Use
  Company Number: US-PFIZER INC-PV202300086335

PATIENT
  Age: 15 Year
  Sex: Male

DRUGS (1)
  1. OXBRYTA [Suspect]
     Active Substance: VOXELOTOR
     Dosage: 500MG/3 TABLETS (TOTAL 1500 MG) ONCE DAILY
     Route: 048

REACTIONS (1)
  - Laboratory test abnormal [Recovering/Resolving]
